FAERS Safety Report 9367396 (Version 1)
Quarter: 2013Q2

REPORT INFORMATION
  Report Type: Spontaneous
  Country: US (occurrence: US)
  Receive Date: 20130625
  Receipt Date: 20130625
  Transmission Date: 20140414
  Serious: Yes (Other)
  Sender: FDA-Public Use
  Company Number: US-PAR PHARMACEUTICAL, INC-2013SCPR005995

PATIENT
  Sex: 0

DRUGS (1)
  1. METOCLOPRAMIDE [Suspect]
     Indication: PRODUCT USED FOR UNKNOWN INDICATION
     Dosage: UNK UNK, QD
     Route: 065

REACTIONS (8)
  - Pancreatic carcinoma [Unknown]
  - CREST syndrome [Unknown]
  - Carpal tunnel syndrome [Unknown]
  - Sjogren^s syndrome [Unknown]
  - Oesophageal stenosis [Unknown]
  - Hyperlipidaemia [Unknown]
  - Hypertension [Unknown]
  - Tardive dyskinesia [Unknown]
